FAERS Safety Report 8263658-5 (Version None)
Quarter: 2012Q2

REPORT INFORMATION
  Report Type: 
  Country: None (occurrence: None)
  Receive Date: 20120405
  Receipt Date: 20120326
  Transmission Date: 20120825
  Serious: Yes (Hospitalization)
  Sender: FDA-Public Use
  Company Number: US-ELI_LILLY_AND_COMPANY-US201111002773

PATIENT
  Sex: Male
  Weight: 78.005 kg

DRUGS (7)
  1. OLANZAPINE [Suspect]
     Dosage: 405 MG, UNK
     Route: 030
     Dates: start: 20111103
  2. OLANZAPINE [Suspect]
     Indication: SCHIZOPHRENIA
     Dosage: 210 MG, UNK
     Route: 030
     Dates: start: 20110708, end: 20110714
  3. OLANZAPINE [Suspect]
     Dosage: 300 MG, UNK
     Route: 030
     Dates: start: 20110826, end: 20110908
  4. OLANZAPINE [Suspect]
     Dosage: 405 MG, UNK
     Route: 030
     Dates: start: 20111007, end: 20111102
  5. OLANZAPINE [Suspect]
     Dosage: 300 MG, UNK
     Route: 030
     Dates: start: 20110812, end: 20110825
  6. OLANZAPINE [Suspect]
     Dosage: 210 MG, UNK
     Route: 030
     Dates: start: 20110715, end: 20110811
  7. OLANZAPINE [Suspect]
     Dosage: 405 MG, UNK
     Route: 030
     Dates: start: 20110909, end: 20111006

REACTIONS (21)
  - COMA [None]
  - ELECTROCARDIOGRAM ST-T CHANGE [None]
  - RHABDOMYOLYSIS [None]
  - DISORIENTATION [None]
  - MYDRIASIS [None]
  - HYPERHIDROSIS [None]
  - TACHYCARDIA [None]
  - AGGRESSION [None]
  - ATAXIA [None]
  - CARDIAC FAILURE CONGESTIVE [None]
  - HYPERTENSION [None]
  - RESTLESSNESS [None]
  - MENTAL STATUS CHANGES [None]
  - CONFUSIONAL STATE [None]
  - BLOOD PH DECREASED [None]
  - ANTIPSYCHOTIC DRUG LEVEL ABOVE THERAPEUTIC [None]
  - DYSARTHRIA [None]
  - DIZZINESS [None]
  - JUGULAR VEIN DISTENSION [None]
  - AGITATION [None]
  - GAIT DISTURBANCE [None]
